FAERS Safety Report 5714200-1 (Version None)
Quarter: 2008Q2

REPORT INFORMATION
  Report Type: 
  Country: None (occurrence: None)
  Receive Date: 20080423
  Receipt Date: 20071120
  Transmission Date: 20081010
  Serious: No
  Sender: FDA-Public Use
  Company Number: US-KINGPHARMUSA00001-K200701501

PATIENT

DRUGS (13)
  1. SKELAXIN [Suspect]
     Indication: MUSCLE SPASMS
     Dosage: UNK, UNK
     Route: 048
     Dates: end: 20071020
  2. KADIAN [Suspect]
     Indication: PAIN
     Dosage: 50 MG, 1 CAP Q12H
     Dates: start: 20071015
  3. RANITIDINE [Concomitant]
     Indication: ULCER
     Route: 048
  4. AMITRIPTYLINE HCL [Concomitant]
     Indication: SLEEP DISORDER
     Route: 048
  5. NAPROXEN [Concomitant]
     Indication: ANTIINFLAMMATORY THERAPY
     Dosage: 500 MG, BID
     Route: 048
  6. BUPROPION HCL [Concomitant]
     Indication: DEPRESSION
     Dosage: 150 MG, QD
     Route: 048
  7. LOVASTATIN [Concomitant]
     Indication: HYPERCHOLESTEROLAEMIA
     Dosage: 40 MG, QHS
     Route: 048
  8. LORATADINE [Concomitant]
     Dosage: UNK, QD
     Route: 048
  9. MELLATINE [Concomitant]
     Dosage: 4 MG, QD
     Route: 048
  10. VITAMIN CAP [Concomitant]
     Indication: VITAMIN SUPPLEMENTATION
     Dosage: UNK, QD
     Route: 048
  11. VITAMIN B12 /00056201/ [Concomitant]
     Indication: VITAMIN SUPPLEMENTATION
     Dosage: 500 MCG, BID
     Route: 048
  12. CALCIUM W/MAGNESIUM/ZINC [Concomitant]
     Indication: VITAMIN SUPPLEMENTATION
     Route: 048
  13. CHROMIUM [Concomitant]
     Indication: MINERAL SUPPLEMENTATION
     Dosage: UNK, QD
     Route: 048

REACTIONS (1)
  - DYSPNOEA [None]
